FAERS Safety Report 4470128-9 (Version None)
Quarter: 2004Q3

REPORT INFORMATION
  Report Type: 
  Country: None (occurrence: None)
  Receive Date: 20040910
  Receipt Date: 20040719
  Transmission Date: 20050211
  Serious: No
  Sender: FDA-Public Use
  Company Number: 2004-00240

PATIENT
  Age: 61 Year
  Sex: Male

DRUGS (4)
  1. VELCADE [Suspect]
     Indication: MULTIPLE MYELOMA
     Dosage: 2.6 MG, INTRAVENOUS
     Route: 042
     Dates: start: 20040628
  2. ZANTAC [Concomitant]
  3. ALLOPURINOL [Concomitant]
  4. UROCIT-K (POTASSIUM CITRATE) [Concomitant]

REACTIONS (8)
  - DIZZINESS [None]
  - DYSPEPSIA [None]
  - FATIGUE [None]
  - HAEMATOCRIT DECREASED [None]
  - HAEMOGLOBIN DECREASED [None]
  - NAUSEA [None]
  - PLATELET COUNT DECREASED [None]
  - RED BLOOD CELL COUNT DECREASED [None]
